FAERS Safety Report 7964131-1 (Version None)
Quarter: 2011Q4

REPORT INFORMATION
  Report Type: 
  Country: None (occurrence: None)
  Receive Date: 20111121
  Receipt Date: 20110927
  Transmission Date: 20120403
  Serious: No
  Sender: FDA-Public Use
  Company Number: 1000023796

PATIENT
  Age: 55 Year
  Sex: Female

DRUGS (6)
  1. WELLBUTRIN XL(BUPROPION HYDROCHLORIDE)(BUPROPION HYDROCHLORIDE) [Concomitant]
  2. ZOLPIDEM (ZOLPIDEM)(ZOLPIDEM) [Concomitant]
  3. CETIRIZINE (CETIRIZINE)(CETIRIZINE) [Concomitant]
  4. VIIBRYD [Suspect]
     Indication: DEPRESSION
     Dosage: 10 MG (10 MG, 1 IN 1 D),ORAL, 20 MG (20 MG, 1 IN 1 D),ORAL
     Route: 048
     Dates: start: 20110911, end: 20110917
  5. VIIBRYD [Suspect]
     Indication: DEPRESSION
     Dosage: 10 MG (10 MG, 1 IN 1 D),ORAL, 20 MG (20 MG, 1 IN 1 D),ORAL
     Route: 048
     Dates: start: 20110918
  6. CLONAZEPAM [Concomitant]

REACTIONS (4)
  - BALANCE DISORDER [None]
  - HEADACHE [None]
  - AMNESIA [None]
  - NAUSEA [None]
